FAERS Safety Report 10188177 (Version 1)
Quarter: 2014Q2

REPORT INFORMATION
  Report Type: Spontaneous
  Country: ES (occurrence: ES)
  Receive Date: 20140522
  Receipt Date: 20140522
  Transmission Date: 20141212
  Serious: Yes (Other)
  Sender: FDA-Public Use
  Company Number: ES-ASTELLAS-2014EU005890

PATIENT
  Sex: 0

DRUGS (1)
  1. ADVAGRAF [Suspect]
     Indication: RENAL TRANSPLANT
     Dosage: 11 MG, SINGLE DOSE
     Route: 065

REACTIONS (1)
  - Adverse event [Unknown]
